FAERS Safety Report 7028313-8 (Version None)
Quarter: 2010Q4

REPORT INFORMATION
  Report Type: 
  Country: None (occurrence: None)
  Receive Date: 20101005
  Receipt Date: 20100928
  Transmission Date: 20110411
  Serious: Yes (Death)
  Sender: FDA-Public Use
  Company Number: ES-ROCHE-724641

PATIENT
  Sex: Male
  Weight: 72 kg

DRUGS (10)
  1. BEVACIZUMAB [Suspect]
     Indication: PRODUCT USED FOR UNKNOWN INDICATION
     Dosage: DATE OF LAST DOSE PRIOR TO SAE: 17 AUGUST 2010.  PERMANENTLY DISCONTINUED.
     Route: 042
     Dates: start: 20100705, end: 20100827
  2. CAPECITABINE [Suspect]
     Indication: PRODUCT USED FOR UNKNOWN INDICATION
     Dosage: FREQUENCY: DAILY. DATE OF LAST DOSE PRIOR TO SAE: 26 AUGUST 2010. PERMANENTLY DISCONTINUED.
     Route: 048
     Dates: start: 20100705, end: 20100827
  3. OXALIPLATINE [Suspect]
     Indication: PRODUCT USED FOR UNKNOWN INDICATION
     Dosage: DATE OF LAST DOSE PRIOR TO SAE: 17 AUGUST 2010.  PERMANENTLY DISCONTINUED.
     Route: 042
     Dates: start: 20100705, end: 20100827
  4. DEXKETOPROFEN [Concomitant]
     Dates: start: 20100827, end: 20100924
  5. OMEPRAZOLE [Concomitant]
     Dates: start: 20100816, end: 20100827
  6. OMEPRAZOLE [Concomitant]
     Dates: start: 20100828, end: 20100924
  7. CARVIDOL [Concomitant]
     Dates: start: 20060101, end: 20100827
  8. MEGESTROL ACETATE [Concomitant]
     Dates: start: 20100608, end: 20100827
  9. ASPIRIN [Concomitant]
     Dates: start: 20060101, end: 20100827
  10. ASPIRIN [Concomitant]
     Dates: end: 20100924

REACTIONS (1)
  - INFECTION [None]
